FAERS Safety Report 5604677-4 (Version None)
Quarter: 2008Q1

REPORT INFORMATION
  Report Type: 
  Country: None (occurrence: None)
  Receive Date: 20080128
  Receipt Date: 20080121
  Transmission Date: 20080703
  Serious: Yes (Hospitalization)
  Sender: FDA-Public Use
  Company Number: US-JNJFOC-20080104763

PATIENT
  Age: 14 Year
  Sex: Male

DRUGS (3)
  1. ASPIRIN [Suspect]
     Indication: THROMBOSIS PROPHYLAXIS
  2. IBUPROFEN [Suspect]
     Indication: PAIN
  3. IBUPROFEN [Suspect]
     Indication: PYREXIA
     Dosage: USED FOR NEARLY A WEEK

REACTIONS (1)
  - TUBULOINTERSTITIAL NEPHRITIS [None]
